FAERS Safety Report 4635888-2 (Version None)
Quarter: 2005Q2

REPORT INFORMATION
  Report Type: 
  Country: None (occurrence: None)
  Receive Date: 20050415
  Receipt Date: 20050412
  Transmission Date: 20051028
  Serious: Yes (Other)
  Sender: FDA-Public Use
  Company Number: US-GLAXOSMITHKLINE-A0553796A

PATIENT
  Age: 35 Year
  Sex: Female

DRUGS (3)
  1. IMITREX [Suspect]
     Indication: MIGRAINE
     Dosage: 100MG AS REQUIRED
     Route: 048
     Dates: start: 20000101
  2. IMITREX [Suspect]
     Dosage: 6MG AS REQUIRED
     Route: 058
     Dates: start: 20030101
  3. WELLBUTRIN XL [Concomitant]

REACTIONS (4)
  - DEAFNESS [None]
  - MENIERE'S DISEASE [None]
  - NECK PAIN [None]
  - PAIN IN JAW [None]
